FAERS Safety Report 22775751 (Version 2)
Quarter: 2025Q4

REPORT INFORMATION
  Report Type: Spontaneous
  Country: EU (occurrence: EU)
  Receive Date: 20230802
  Receipt Date: 20251003
  Transmission Date: 20260117
  Serious: Yes (Hospitalization, Other)
  Sender: SANOFI AVENTIS
  Company Number: EU-SA-2023SA230776

PATIENT
  Age: 47 Year
  Sex: Male

DRUGS (6)
  1. LEVOFLOXACIN [Suspect]
     Active Substance: LEVOFLOXACIN
     Indication: COVID-19 pneumonia
     Dosage: 500 MG, QD
     Route: 042
     Dates: start: 202111
  2. ENOXAPARIN SODIUM [Suspect]
     Active Substance: ENOXAPARIN SODIUM
     Indication: COVID-19 pneumonia
     Dosage: 60 MG, QD
     Route: 058
     Dates: start: 202111
  3. CEFOPERAZONE SODIUM\SULBACTAM SODIUM [Suspect]
     Active Substance: CEFOPERAZONE SODIUM\SULBACTAM SODIUM
     Indication: COVID-19 pneumonia
     Dosage: 2 X 1 G
     Route: 042
     Dates: start: 202111
  4. TORSEMIDE [Suspect]
     Active Substance: TORSEMIDE
     Indication: COVID-19 pneumonia
     Dosage: 20 MG, QD
     Route: 042
     Dates: start: 202111
  5. IVABRADINE [Suspect]
     Active Substance: IVABRADINE
     Indication: COVID-19 pneumonia
     Dosage: 2 X 5 MG, QD
     Route: 048
     Dates: start: 202111
  6. OXYGEN [Concomitant]
     Active Substance: OXYGEN
     Indication: COVID-19 pneumonia
     Dosage: 6-8 L/MIN
     Dates: start: 202111

REACTIONS (3)
  - Multiple organ dysfunction syndrome [Recovered/Resolved]
  - Pyrexia [Recovered/Resolved]
  - Drug ineffective [Unknown]

NARRATIVE: CASE EVENT DATE: 20211101
